FAERS Safety Report 20816866 (Version 2)
Quarter: 2022Q2

REPORT INFORMATION
  Report Type: Spontaneous
  Country: IT (occurrence: IT)
  Receive Date: 20220512
  Receipt Date: 20220526
  Transmission Date: 20220720
  Serious: Yes (Other)
  Sender: FDA-Public Use
  Company Number: IT-TEVA-2022-IT-2035015

PATIENT
  Age: 54 Year
  Sex: Female

DRUGS (5)
  1. CISPLATIN [Suspect]
     Active Substance: CISPLATIN
     Indication: Anaplastic thyroid cancer
     Route: 065
     Dates: start: 201901
  2. DOXORUBICIN [Suspect]
     Active Substance: DOXORUBICIN
     Indication: Anaplastic thyroid cancer
     Route: 065
     Dates: start: 201901
  3. PACLITAXEL [Suspect]
     Active Substance: PACLITAXEL
     Indication: Anaplastic thyroid cancer
     Dosage: SHE RECEIVED 4 COURSES OF PACLITAXEL
     Route: 065
     Dates: start: 201909
  4. LENVATINIB [Suspect]
     Active Substance: LENVATINIB
     Indication: Anaplastic thyroid cancer
     Dosage: 24 MILLIGRAM DAILY;
     Route: 065
     Dates: start: 202001
  5. PEMBROLIZUMAB [Suspect]
     Active Substance: PEMBROLIZUMAB
     Indication: Anaplastic thyroid cancer
     Route: 065
     Dates: start: 202001

REACTIONS (5)
  - Drug ineffective [Unknown]
  - Diarrhoea [Unknown]
  - Vomiting [Unknown]
  - Weight decreased [Unknown]
  - Off label use [Unknown]

NARRATIVE: CASE EVENT DATE: 20190101
